FAERS Safety Report 9478041 (Version 2)
Quarter: 2013Q3

REPORT INFORMATION
  Report Type: Report from Study
  Country: HU (occurrence: HU)
  Receive Date: 20130827
  Receipt Date: 20130827
  Transmission Date: 20140515
  Serious: Yes (Hospitalization, Other)
  Sender: FDA-Public Use
  Company Number: PHHO2011HU16613

PATIENT
  Age: 69 Year
  Sex: Female
  Weight: 70 kg

DRUGS (8)
  1. PLACEBO [Suspect]
     Indication: CORONARY ARTERY DISEASE
     Dosage: UNK
     Route: 048
     Dates: start: 20110112
  2. ALISKIREN [Suspect]
     Indication: CORONARY ARTERY DISEASE
     Dosage: 150 MG, UNK
  3. ASPIRIN [Concomitant]
     Indication: CORONARY ARTERY DISEASE
     Dosage: 100 MG, QD
     Dates: start: 20050101
  4. BISOBLOC [Concomitant]
     Indication: CORONARY ARTERY DISEASE
     Dosage: 05 MG, BID
     Dates: start: 20050101
  5. BISOBLOC [Concomitant]
     Indication: HYPERTENSION
  6. NOLPAZA [Concomitant]
     Indication: DYSPEPSIA
     Dosage: 20 MG, BID
     Dates: start: 20080101
  7. MICARDIS [Concomitant]
     Indication: HYPERTENSION
     Dosage: 80 MG, QD
     Dates: start: 20080101
  8. SIMVASTATIN [Concomitant]
     Indication: CORONARY ARTERY DISEASE
     Dosage: 40 MG, QD
     Dates: start: 20080101

REACTIONS (1)
  - Cardiac failure [Recovered/Resolved]
